FAERS Safety Report 8391141-5 (Version None)
Quarter: 2012Q2

REPORT INFORMATION
  Report Type: 
  Country: None (occurrence: None)
  Receive Date: 20120529
  Receipt Date: 20120515
  Transmission Date: 20120825
  Serious: Yes (Hospitalization, Other)
  Sender: FDA-Public Use
  Company Number: FR-ELI_LILLY_AND_COMPANY-FR201112001250

PATIENT
  Age: 30 Year
  Sex: Male

DRUGS (6)
  1. RIFADIN [Concomitant]
     Indication: ANTIBIOTIC THERAPY
     Dosage: 600 MG, BID
     Route: 042
     Dates: start: 20110802, end: 20110822
  2. CLAFORAN [Concomitant]
     Dosage: 4 G, TID
     Route: 042
     Dates: start: 20110822, end: 20110825
  3. PIPERACILLINE [Concomitant]
     Indication: ANTIBIOTIC THERAPY
     Dosage: 4 G, TID
     Route: 042
     Dates: start: 20110802, end: 20110822
  4. CLAFORAN [Concomitant]
     Indication: ANTIBIOTIC THERAPY
     Dosage: 4 G, TID
     Route: 042
     Dates: start: 20110725, end: 20110802
  5. FOSFOCINE [Concomitant]
     Indication: ANTIBIOTIC THERAPY
     Dosage: 4 G, TID
     Route: 042
     Dates: start: 20110725, end: 20110802
  6. ZYPREXA [Suspect]
     Indication: PSYCHOTIC DISORDER
     Dosage: 10 MG, QD
     Route: 048
     Dates: start: 20110727, end: 20110825

REACTIONS (2)
  - DRUG RASH WITH EOSINOPHILIA AND SYSTEMIC SYMPTOMS [None]
  - HYPERSENSITIVITY [None]
